FAERS Safety Report 25896216 (Version 1)
Quarter: 2025Q4

REPORT INFORMATION
  Report Type: Spontaneous
  Country: US (occurrence: None)
  Receive Date: 20251008
  Receipt Date: 20251008
  Transmission Date: 20260117
  Serious: Yes (Hospitalization)
  Sender: FDA-CTU
  Company Number: None

PATIENT
  Age: 28 Year
  Sex: Female

DRUGS (4)
  1. VONVENDI [Suspect]
     Active Substance: VON WILLEBRAND FACTOR (RECOMBINANT)
     Indication: Von Willebrand^s disease
     Dosage: FREQUENCY : DAILY;?STRENGTH: 1300
     Route: 042
     Dates: start: 20240301
  2. NORMAL SALINE FLUSH (5ML) [Concomitant]
  3. WILATE INJ [Concomitant]
  4. HUMATE-P [Suspect]
     Active Substance: HUMAN COAGULATION FACTOR VIII/VON WILLEBRAND FACTOR COMPLEX

REACTIONS (2)
  - Abortion spontaneous [None]
  - Post procedural haemorrhage [None]

NARRATIVE: CASE EVENT DATE: 20250619
